FAERS Safety Report 8920577 (Version 1)
Quarter: 2012Q4

REPORT INFORMATION
  Report Type: 
  Country: US (occurrence: US)
  Receive Date: 20121122
  Receipt Date: 20121122
  Transmission Date: 20130627
  Serious: No
  Sender: FDA-Public Use
  Company Number: US-009507513-1211USA007052

PATIENT
  Sex: Female

DRUGS (4)
  1. MAXALT MLT [Suspect]
     Indication: MIGRAINE
     Dosage: UNK, prn
     Route: 048
     Dates: start: 2011
  2. HYDROCHLOROTHIAZIDE [Concomitant]
  3. VICODIN [Concomitant]
  4. CELEBREX [Concomitant]

REACTIONS (1)
  - Arthralgia [Recovered/Resolved]
